FAERS Safety Report 4614010-2 (Version None)
Quarter: 2005Q1

REPORT INFORMATION
  Report Type: 
  Country: None (occurrence: None)
  Receive Date: 20050316
  Receipt Date: 20050301
  Transmission Date: 20050727
  Serious: Yes (Hospitalization)
  Sender: FDA-Public Use
  Company Number: GBS050216702

PATIENT
  Age: 60 Year
  Sex: Female

DRUGS (1)
  1. GEMZAR [Suspect]
     Indication: NEOPLASM MALIGNANT

REACTIONS (6)
  - INFECTION [None]
  - INJECTION SITE REACTION [None]
  - SKIN TOXICITY [None]
  - SOFT TISSUE INFECTION [None]
  - SWELLING [None]
  - VASCULITIS [None]
